FAERS Safety Report 6328967-5 (Version None)
Quarter: 2009Q3

REPORT INFORMATION
  Report Type: 
  Country: None (occurrence: None)
  Receive Date: 20090824
  Receipt Date: 20090824
  Transmission Date: 20100115
  Serious: Yes (Other)
  Sender: FDA-Public Use
  Company Number: None

PATIENT
  Age: 28 Year
  Sex: Male
  Weight: 74.8435 kg

DRUGS (1)
  1. ENBREL [Suspect]
     Indication: PSORIATIC ARTHROPATHY
     Dosage: 50MG 1X/WEEK SQ
     Route: 058
     Dates: start: 20030915, end: 20090822

REACTIONS (3)
  - CONDITION AGGRAVATED [None]
  - PAPILLOMA VIRAL INFECTION [None]
  - PENILE INFECTION [None]
